FAERS Safety Report 25758457 (Version 1)
Quarter: 2025Q3

REPORT INFORMATION
  Report Type: Spontaneous
  Country: AU (occurrence: AU)
  Receive Date: 20250904
  Receipt Date: 20250904
  Transmission Date: 20251020
  Serious: Yes (Other)
  Sender: ACCORD
  Company Number: None

PATIENT
  Age: 48 Year
  Sex: Female

DRUGS (1)
  1. CARBOPLATIN [Suspect]
     Active Substance: CARBOPLATIN
     Indication: Product used for unknown indication

REACTIONS (11)
  - Vomiting [Unknown]
  - Chest discomfort [Unknown]
  - Dyspnoea [Unknown]
  - Electrocardiogram T wave inversion [Unknown]
  - Flushing [Unknown]
  - Hyperhidrosis [Unknown]
  - Paraesthesia [Unknown]
  - Rhinorrhoea [Unknown]
  - Sinus tachycardia [Unknown]
  - Throat irritation [Unknown]
  - Cough [Unknown]
